FAERS Safety Report 9667874 (Version 3)
Quarter: 2015Q1

REPORT INFORMATION
  Report Type: Spontaneous
  Country: DK (occurrence: DK)
  Receive Date: 20131104
  Receipt Date: 20150327
  Transmission Date: 20150721
  Serious: Yes (Other)
  Sender: FDA-Public Use
  Company Number: DK-PFIZER INC-2013312092

PATIENT
  Age: 39 Year
  Sex: Male
  Weight: 86 kg

DRUGS (5)
  1. CITALOPRAM [Suspect]
     Active Substance: CITALOPRAM HYDROBROMIDE
     Indication: DEPRESSION
     Route: 048
  2. SAROTEN [Suspect]
     Active Substance: AMITRIPTYLINE
     Indication: DEPRESSION
     Dosage: 10 MG, 1X/DAY
     Route: 048
     Dates: start: 20050101, end: 201312
  3. NORITREN [Concomitant]
     Active Substance: NORTRIPTYLINE HYDROCHLORIDE
     Indication: DEPRESSION
  4. LYRICA [Suspect]
     Active Substance: PREGABALIN
     Indication: BACK PAIN
     Dosage: 75 MG. DOSE: 3 CAPSULES MORNING, 2 CAPSULES AT MIDDAY AND 3 CAPSULES IN THE EVENING.
     Route: 048
     Dates: start: 20080101, end: 201312
  5. MANDOLGIN RETARD [Suspect]
     Active Substance: TRAMADOL
     Indication: BACK PAIN
     Dosage: 100 MG, 2X/DAY
     Route: 048
     Dates: start: 20070101, end: 201312

REACTIONS (7)
  - Drug withdrawal syndrome [Unknown]
  - Suicidal behaviour [Recovered/Resolved]
  - Treatment noncompliance [Unknown]
  - Drug dependence [Unknown]
  - Suicide attempt [Unknown]
  - Arthralgia [Recovered/Resolved]
  - Intentional product misuse [Unknown]

NARRATIVE: CASE EVENT DATE: 20110225
